FAERS Safety Report 6348063-0 (Version None)
Quarter: 2009Q3

REPORT INFORMATION
  Report Type: 
  Country: None (occurrence: None)
  Receive Date: 20090908
  Receipt Date: 20090825
  Transmission Date: 20100115
  Serious: Yes (Hospitalization, Other)
  Sender: FDA-Public Use
  Company Number: PAR_03151_2009

PATIENT
  Age: 67 Year
  Sex: Female

DRUGS (7)
  1. CAPTOPRIL [Suspect]
     Indication: HYPERTENSION
     Dosage: (6.25 MG TID ORAL)
     Route: 048
  2. CAPTOPRIL [Suspect]
     Indication: HYPERTENSION
     Dosage: (25 MG  1X, SUBLINGUAL AND ORAL)
     Route: 060
  3. ENTACAPONE [Concomitant]
  4. SELEGILINE HCL [Concomitant]
  5. AMANTADINE HCL [Concomitant]
  6. CARBIDOPA AND LEVODOPA [Concomitant]
  7. PERGOLIDE [Concomitant]

REACTIONS (2)
  - AKINESIA [None]
  - DYSKINESIA [None]
